FAERS Safety Report 14665182 (Version 1)
Quarter: 2018Q1

REPORT INFORMATION
  Report Type: Spontaneous
  Country: IT (occurrence: IT)
  Receive Date: 20180321
  Receipt Date: 20180321
  Transmission Date: 20180509
  Serious: Yes (Other)
  Sender: FDA-Public Use
  Company Number: IT-JNJFOC-20180321929

PATIENT
  Age: 15 Year
  Sex: Female

DRUGS (2)
  1. RISPERDAL [Suspect]
     Active Substance: RISPERIDONE
     Indication: ABNORMAL BEHAVIOUR
     Route: 048
  2. RISPERDAL [Suspect]
     Active Substance: RISPERIDONE
     Indication: ABNORMAL BEHAVIOUR
     Route: 048
     Dates: start: 2018, end: 2018

REACTIONS (5)
  - Dysarthria [Recovered/Resolved]
  - Accidental exposure to product [Unknown]
  - Off label use [Unknown]
  - Product use in unapproved indication [Unknown]
  - Slow speech [Recovered/Resolved]

NARRATIVE: CASE EVENT DATE: 2018
